FAERS Safety Report 11241958 (Version 1)
Quarter: 2015Q3

REPORT INFORMATION
  Report Type: Spontaneous
  Country: ZA (occurrence: ZA)
  Receive Date: 20150706
  Receipt Date: 20150706
  Transmission Date: 20151125
  Serious: Yes (Death)
  Sender: FDA-Public Use
  Company Number: ZA-MYLANLABS-2015M1021543

PATIENT

DRUGS (21)
  1. PURATA [Concomitant]
     Indication: ANXIETY
     Dosage: 30 MG, QD
     Route: 065
  2. LANCAP [Concomitant]
     Indication: GASTRIC ULCER
     Dosage: 30 MG, QD
     Route: 065
  3. ESCITALOPRAM [Suspect]
     Active Substance: ESCITALOPRAM OXALATE
     Indication: DEPRESSION
     Dosage: 10 MG, QD
     Route: 065
  4. SYMBICORD [Concomitant]
     Active Substance: BUDESONIDE\FORMOTEROL
     Indication: CHRONIC OBSTRUCTIVE PULMONARY DISEASE
  5. COVOCORT [Concomitant]
     Indication: ADDISON^S DISEASE
     Dosage: 10 MG, QD
     Route: 065
  6. ADCO-ZOLPIDEM [Concomitant]
     Active Substance: ZOLPIDEM TARTRATE
     Indication: INSOMNIA
     Dosage: 10 MG, QD
     Route: 065
  7. SYMBICORD [Concomitant]
     Active Substance: BUDESONIDE\FORMOTEROL
     Indication: ASTHMA
     Dosage: UNK UNK, QD (120 DOSE)
     Route: 065
  8. FENDERMAL [Concomitant]
     Indication: PAIN
     Dosage: 100 MG, QD
     Route: 065
  9. ACETAMINOPHEN\TRAMADOL HYDROCHLORIDE [Concomitant]
     Active Substance: ACETAMINOPHEN\TRAMADOL HYDROCHLORIDE
     Indication: PAIN
     Dosage: 325 MG, QD
     Route: 065
  10. VASOMIL [Concomitant]
     Indication: ANGINA PECTORIS
     Dosage: 80 MG, QD
     Route: 065
  11. ECOTRIN [Concomitant]
     Active Substance: ASPIRIN
     Indication: ANGINA PECTORIS
     Dosage: 81 MG, QD
     Route: 065
  12. BE-TABS FOLIC ACID [Concomitant]
     Indication: VITAMIN SUPPLEMENTATION
     Dosage: 5 MG, QD
     Route: 065
  13. EVOREL [Concomitant]
     Indication: MENOPAUSE
     Dosage: 503.2 MG, QD
     Route: 065
  14. FORVENT [Concomitant]
     Indication: BRONCHITIS
     Dosage: 18 MG, QD
     Route: 065
  15. ZOFER [Concomitant]
     Indication: NAUSEA
     Dosage: 4 MG, QD
     Route: 065
  16. ZOFER [Concomitant]
     Indication: VOMITING
  17. CLOPAMON [Concomitant]
     Active Substance: METOCLOPRAMIDE
     Indication: NAUSEA
     Dosage: 10 MG, QD
     Route: 065
  18. LANOXIN [Concomitant]
     Active Substance: DIGOXIN
     Indication: ATRIAL FIBRILLATION
     Dosage: 0.25 MG, QD
     Route: 065
  19. XALATAN [Concomitant]
     Active Substance: LATANOPROST
     Indication: GLAUCOMA
     Dosage: 50 MG, QD
     Route: 065
  20. ARYCOR [Concomitant]
     Indication: TACHYARRHYTHMIA
     Dosage: 200 MG, QD
     Route: 065
  21. EUPHYLLIN                          /00012201/ [Concomitant]
     Indication: ASTHMA
     Dosage: 250 MG, QD
     Route: 065

REACTIONS (1)
  - Neoplasm malignant [Fatal]

NARRATIVE: CASE EVENT DATE: 20111219
